FAERS Safety Report 5731953-7 (Version None)
Quarter: 2008Q2

REPORT INFORMATION
  Report Type: 
  Country: None (occurrence: None)
  Receive Date: 20080508
  Receipt Date: 20080506
  Transmission Date: 20081010
  Serious: Yes (Death, Hospitalization)
  Sender: FDA-Public Use
  Company Number: FR-ASTRAZENECA-2008CG00684

PATIENT
  Age: 22186 Day
  Sex: Male

DRUGS (8)
  1. OMEPRAZOLE [Suspect]
     Route: 048
  2. ZANTAC [Suspect]
     Route: 048
  3. COAPROVEL [Suspect]
     Route: 048
  4. LORAZEPAM [Concomitant]
  5. ZOPICLONE [Concomitant]
  6. SERETIDE [Concomitant]
  7. NON-STEROID ANTI-INFLAMMATORY DRUG [Concomitant]
  8. PARACETAMOL [Concomitant]

REACTIONS (1)
  - RENAL FAILURE ACUTE [None]
